FAERS Safety Report 6249539-7 (Version None)
Quarter: 2009Q2

REPORT INFORMATION
  Report Type: 
  Country: None (occurrence: None)
  Receive Date: 20090624
  Receipt Date: 20090608
  Transmission Date: 20091009
  Serious: No
  Sender: FDA-Public Use
  Company Number: A03200902687

PATIENT
  Age: 81 Year
  Sex: Male

DRUGS (2)
  1. OFORTA - (FLUDARABINE PHOSPHATE) [Suspect]
  2. CORDARONE [Suspect]

REACTIONS (3)
  - BEDRIDDEN [None]
  - DRUG INTERACTION [None]
  - PYREXIA [None]
